FAERS Safety Report 14332556 (Version 1)
Quarter: 2017Q4

REPORT INFORMATION
  Report Type: Spontaneous
  Country: ES (occurrence: ES)
  Receive Date: 20171228
  Receipt Date: 20171228
  Transmission Date: 20180321
  Serious: Yes (Other)
  Sender: FDA-Public Use
  Company Number: ES-GUERBET-ES-20170069

PATIENT
  Age: 66 Year
  Sex: Female

DRUGS (1)
  1. LIPIODOL [Suspect]
     Active Substance: ETHIODIZED OIL
     Indication: SPINAL MYELOGRAM
     Route: 037

REACTIONS (2)
  - Arachnoiditis [Unknown]
  - Product use in unapproved indication [Unknown]
